FAERS Safety Report 10676863 (Version 8)
Quarter: 2023Q2

REPORT INFORMATION
  Report Type: Report from Study
  Country: US (occurrence: US)
  Receive Date: 20141226
  Receipt Date: 20230609
  Transmission Date: 20230722
  Serious: Yes (Death, Hospitalization, Other)
  Sender: FDA-Public Use
  Company Number: US-SA-2014SA176253

PATIENT
  Age: 8 Year
  Sex: Female
  Weight: 17.5 kg

DRUGS (6)
  1. ALGLUCOSIDASE ALFA [Suspect]
     Active Substance: ALGLUCOSIDASE ALFA
     Indication: Glycogen storage disease type II
     Dosage: 31.42 MG/KG,QOW
     Route: 041
     Dates: start: 20141112, end: 20150702
  2. ALGLUCOSIDASE ALFA [Suspect]
     Active Substance: ALGLUCOSIDASE ALFA
     Dosage: 25 MG/KG,QOW
     Route: 041
  3. CLOTRIMAZOLE [Concomitant]
     Active Substance: CLOTRIMAZOLE
     Dosage: UNK
     Route: 065
  4. ALBUTEROL [Concomitant]
     Active Substance: ALBUTEROL
     Dosage: UNK
     Route: 065
  5. CALCIUM CARBONATE [Concomitant]
     Active Substance: CALCIUM CARBONATE
     Dosage: UNK
     Route: 065
  6. ATIVAN [Concomitant]
     Active Substance: LORAZEPAM
     Dosage: UNK UNK,TID

REACTIONS (31)
  - Respiratory failure [Fatal]
  - Respiratory tract infection [Unknown]
  - Pyrexia [Unknown]
  - Bronchitis [Recovered/Resolved]
  - Neutrophilia [Recovered/Resolved]
  - Bronchial secretion retention [Recovered/Resolved]
  - White blood cell count increased [Recovered/Resolved]
  - Cardio-respiratory arrest [Unknown]
  - Syncope [Unknown]
  - Vomiting [Unknown]
  - Bronchiectasis [Recovered/Resolved]
  - Coma [Unknown]
  - Candida infection [Recovered/Resolved]
  - Dysmyelination [Unknown]
  - Hypoxic-ischaemic encephalopathy [Unknown]
  - Haemophilus infection [Recovered/Resolved]
  - Pulmonary oedema [Unknown]
  - Pneumonia aspiration [Unknown]
  - Acute respiratory distress syndrome [Unknown]
  - Brain injury [Unknown]
  - Cardiac arrest [Unknown]
  - Metabolic acidosis [Unknown]
  - Sinus tachycardia [Unknown]
  - Left ventricular dysfunction [Unknown]
  - Right ventricular dysfunction [Unknown]
  - Abdominal pain [Unknown]
  - Cyanosis [Unknown]
  - Respiratory acidosis [Unknown]
  - White blood cell disorder [Unknown]
  - Device occlusion [Unknown]
  - Product contamination physical [Unknown]

NARRATIVE: CASE EVENT DATE: 20141216
